FAERS Safety Report 5634158-3 (Version None)
Quarter: 2008Q1

REPORT INFORMATION
  Report Type: 
  Country: None (occurrence: None)
  Receive Date: 20080131
  Receipt Date: 20070105
  Transmission Date: 20080703
  Serious: Yes (Other)
  Sender: FDA-Public Use
  Company Number: 151614USA

PATIENT
  Sex: Female
  Weight: 67.586 kg

DRUGS (1)
  1. COPAXONE [Suspect]
     Dosage: (20 MG), SUBCUTANEOUS
     Route: 058

REACTIONS (5)
  - BACK PAIN [None]
  - FATIGUE [None]
  - FEELING COLD [None]
  - LOSS OF CONSCIOUSNESS [None]
  - SWELLING FACE [None]
